FAERS Safety Report 26102958 (Version 1)
Quarter: 2025Q4

REPORT INFORMATION
  Report Type: Spontaneous
  Country: US (occurrence: US)
  Receive Date: 20251128
  Receipt Date: 20251128
  Transmission Date: 20260117
  Serious: No
  Sender: ABBVIE
  Company Number: US-ABBVIE-6568987

PATIENT

DRUGS (1)
  1. LINZESS [Suspect]
     Active Substance: LINACLOTIDE
     Indication: Constipation
     Dosage: IN MORNING BEFORE FOOD
     Route: 048
     Dates: start: 2023

REACTIONS (4)
  - Dyschezia [Not Recovered/Not Resolved]
  - Faeces hard [Unknown]
  - Diarrhoea [Unknown]
  - Infrequent bowel movements [Unknown]
